FAERS Safety Report 6399012-0 (Version None)
Quarter: 2009Q4

REPORT INFORMATION
  Report Type: 
  Country: None (occurrence: None)
  Receive Date: 20091008
  Receipt Date: 20091008
  Transmission Date: 20100525
  Serious: Yes (Hospitalization)
  Sender: FDA-Public Use
  Company Number: None

PATIENT
  Sex: Male
  Weight: 82.7 kg

DRUGS (3)
  1. FLUOROURACIL [Suspect]
     Dosage: 2258 MG
  2. CISPLATIN [Suspect]
     Dosage: 98 MG
  3. ELLENCE [Suspect]
     Dosage: 82 MG

REACTIONS (10)
  - BACTERIAL INFECTION [None]
  - BLOOD CULTURE POSITIVE [None]
  - DEVICE RELATED INFECTION [None]
  - DIARRHOEA [None]
  - NAUSEA [None]
  - ORAL PAIN [None]
  - OROPHARYNGEAL PAIN [None]
  - STAPHYLOCOCCAL SEPSIS [None]
  - STOMATITIS [None]
  - VOMITING [None]
